FAERS Safety Report 7852439-X (Version None)
Quarter: 2011Q4

REPORT INFORMATION
  Report Type: 
  Country: None (occurrence: None)
  Receive Date: 20111026
  Receipt Date: 20111017
  Transmission Date: 20120403
  Serious: Yes (Other)
  Sender: FDA-Public Use
  Company Number: US-ASTRAZENECA-2011SE48502

PATIENT
  Age: 73 Year
  Sex: Female
  Weight: 93 kg

DRUGS (11)
  1. NEXIUM [Suspect]
     Route: 048
  2. TOPROL-XL [Suspect]
     Route: 048
  3. CRESTOR [Concomitant]
     Route: 048
  4. NORVASC [Concomitant]
  5. SYNTHROID [Concomitant]
  6. DOXYCYCLINE [Concomitant]
  7. XANAX [Concomitant]
  8. ASPIRIN [Concomitant]
  9. TYL 3 [Concomitant]
  10. VICODIN [Concomitant]
  11. REQUIP [Concomitant]

REACTIONS (1)
  - ROTATOR CUFF SYNDROME [None]
